FAERS Safety Report 6000394-X (Version None)
Quarter: 2008Q4

REPORT INFORMATION
  Report Type: 
  Country: None (occurrence: None)
  Receive Date: 20081211
  Receipt Date: 20081211
  Transmission Date: 20090506
  Serious: No
  Sender: FDA-Public Use
  Company Number: None

PATIENT
  Age: 34 Year
  Sex: Female
  Weight: 58.9676 kg

DRUGS (1)
  1. ADVAIR HFA [Suspect]
     Indication: ASTHMA
     Dosage: 2 PUFFS 2X DAILY INHAL
     Route: 055
     Dates: start: 20080710, end: 20081208

REACTIONS (3)
  - ABDOMINAL PAIN [None]
  - ORAL CANDIDIASIS [None]
  - VISION BLURRED [None]
